FAERS Safety Report 5272265-8 (Version None)
Quarter: 2007Q1

REPORT INFORMATION
  Report Type: 
  Country: None (occurrence: None)
  Receive Date: 20070322
  Receipt Date: 20051004
  Transmission Date: 20070707
  Serious: Yes (Death)
  Sender: FDA-Public Use
  Company Number: EM2005-0394

PATIENT
  Age: 54 Year
  Sex: Male

DRUGS (3)
  1. PROLEUKIN [Suspect]
     Indication: RENAL CELL CARCINOMA STAGE UNSPECIFIED
     Dosage: 9 MU, QD
     Route: 058
     Dates: start: 20050608, end: 20050619
  2. LASIX [Concomitant]
  3. INDOMETHACIN [Concomitant]

REACTIONS (2)
  - MULTI-ORGAN FAILURE [None]
  - RENAL FAILURE [None]
